FAERS Safety Report 7151257-8 (Version None)
Quarter: 2010Q4

REPORT INFORMATION
  Report Type: 
  Country: None (occurrence: None)
  Receive Date: 20101210
  Receipt Date: 20101126
  Transmission Date: 20110411
  Serious: Yes (Other)
  Sender: FDA-Public Use
  Company Number: FI-SANOFI-AVENTIS-2010SA070432

PATIENT
  Age: 72 Year
  Sex: Female

DRUGS (3)
  1. LANTUS [Suspect]
     Indication: LATENT AUTOIMMUNE DIABETES IN ADULTS
  2. INSULIN DETEMIR [Suspect]
  3. HUMALOG [Concomitant]
     Indication: LATENT AUTOIMMUNE DIABETES IN ADULTS

REACTIONS (4)
  - FEELING ABNORMAL [None]
  - HYPOGLYCAEMIA [None]
  - HYPOTHERMIA [None]
  - VISUAL IMPAIRMENT [None]
